FAERS Safety Report 5521364-1 (Version None)
Quarter: 2007Q4

REPORT INFORMATION
  Report Type: 
  Country: None (occurrence: None)
  Receive Date: 20071119
  Receipt Date: 20070618
  Transmission Date: 20080405
  Serious: No
  Sender: FDA-Public Use
  Company Number: US-BOEHRINGER INGELHEIM PHARMACEUTICALS, INC.-2007-BP-11577BP

PATIENT
  Sex: Female

DRUGS (7)
  1. ZANTAC 75 [Suspect]
     Indication: DYSPEPSIA
     Route: 048
     Dates: start: 20070607, end: 20070617
  2. ZANTAC 75 [Suspect]
  3. MOBIC [Concomitant]
     Indication: OSTEOARTHRITIS
  4. TREXOL [Concomitant]
     Indication: RHEUMATOID ARTHRITIS
  5. LEXAPRO [Concomitant]
     Indication: ANXIETY
  6. SYNTHROID [Concomitant]
     Indication: HYPOTHYROIDISM
  7. BONIVA [Concomitant]
     Indication: PROPHYLAXIS

REACTIONS (2)
  - PRURITUS [None]
  - RASH [None]
